FAERS Safety Report 17877237 (Version 1)
Quarter: 2020Q2

REPORT INFORMATION
  Report Type: Spontaneous
  Country: BR (occurrence: BR)
  Receive Date: 20200609
  Receipt Date: 20200609
  Transmission Date: 20200714
  Serious: Yes (Other)
  Sender: FDA-Public Use
  Company Number: BR-DSJP-DSU-2019-113610

PATIENT

DRUGS (8)
  1. OLMETEC HCT [Suspect]
     Active Substance: HYDROCHLOROTHIAZIDE\OLMESARTAN MEDOXOMIL
     Indication: HYPERTENSION
     Dosage: 1 TABLET OF 40+25MG, DAILY (BEFORE BREAKFAST)
     Route: 065
     Dates: start: 2011, end: 2015
  2. SUSTRATE [Concomitant]
     Active Substance: PROPATYL NITRATE
     Indication: PRODUCT USED FOR UNKNOWN INDICATION
     Dosage: UNK
     Route: 065
     Dates: start: 1985
  3. OLMETEC HCT [Suspect]
     Active Substance: HYDROCHLOROTHIAZIDE\OLMESARTAN MEDOXOMIL
     Dosage: 1 TABLET OF 20+12.5MG, QD (AFTER BREAKFAST)
     Route: 065
     Dates: start: 2015, end: 2016
  4. OLMETEC HCT [Suspect]
     Active Substance: HYDROCHLOROTHIAZIDE\OLMESARTAN MEDOXOMIL
     Dosage: 1 TABLET OF 20+12.5MG, QD (AFTER LUNCH)
     Route: 065
     Dates: start: 2016
  5. PROPRANOLOL [Concomitant]
     Active Substance: PROPRANOLOL HYDROCHLORIDE
     Indication: ARRHYTHMIA
     Dosage: UNK
     Route: 065
     Dates: start: 1985
  6. OLMETEC HCT [Suspect]
     Active Substance: HYDROCHLOROTHIAZIDE\OLMESARTAN MEDOXOMIL
     Dosage: 1 TABLET OF 40+25MG, QD
     Route: 065
     Dates: start: 202003
  7. VALIUM [Concomitant]
     Active Substance: DIAZEPAM
     Indication: PRODUCT USED FOR UNKNOWN INDICATION
     Dosage: 10 MG (IN MORNING)
     Route: 065
     Dates: start: 1978
  8. OLMETEC HCT [Suspect]
     Active Substance: HYDROCHLOROTHIAZIDE\OLMESARTAN MEDOXOMIL
     Dosage: UNKNOWN 40+12.5MG, QD
     Route: 065

REACTIONS (14)
  - Drug ineffective [Unknown]
  - Malaise [Unknown]
  - Stress [Unknown]
  - Decreased immune responsiveness [Unknown]
  - Blister [Unknown]
  - Wrong dose [Unknown]
  - Mitral valve prolapse [Unknown]
  - Nervousness [Unknown]
  - Herpes virus infection [Unknown]
  - Dizziness [Unknown]
  - Hypotension [Unknown]
  - Facial paralysis [Unknown]
  - Dyschromatopsia [Unknown]
  - Blood pressure inadequately controlled [Unknown]
